FAERS Safety Report 7601818-4 (Version None)
Quarter: 2011Q3

REPORT INFORMATION
  Report Type: 
  Country: None (occurrence: None)
  Receive Date: 20110711
  Receipt Date: 20110706
  Transmission Date: 20111222
  Serious: Yes (Other)
  Sender: FDA-Public Use
  Company Number: US-PFIZER INC-2011135625

PATIENT
  Sex: Female

DRUGS (2)
  1. LYRICA [Suspect]
     Indication: FIBROMYALGIA
     Dosage: 75 MG, 1X/DAY EVERY NIGHT
     Route: 048
     Dates: start: 20110415, end: 20110605
  2. ATIVAN [Concomitant]
     Indication: ANXIETY
     Dosage: 2 MG, UNK
     Dates: start: 20110415, end: 20110605

REACTIONS (2)
  - MAJOR DEPRESSION [None]
  - SUICIDE ATTEMPT [None]
